FAERS Safety Report 7579642-0 (Version None)
Quarter: 2011Q2

REPORT INFORMATION
  Report Type: 
  Country: None (occurrence: None)
  Receive Date: 20110629
  Receipt Date: 20110627
  Transmission Date: 20111010
  Serious: Yes (Death, Hospitalization)
  Sender: FDA-Public Use
  Company Number: US-AMGEN-USASP2011028539

PATIENT
  Age: 75 Year
  Sex: Female
  Weight: 94.785 kg

DRUGS (1)
  1. NPLATE [Suspect]
     Indication: IDIOPATHIC THROMBOCYTOPENIC PURPURA
     Dosage: 180 A?G/KG, UNK
     Route: 058
     Dates: start: 20101230, end: 20110201

REACTIONS (2)
  - DEEP VEIN THROMBOSIS [None]
  - DEATH [None]
